FAERS Safety Report 10247833 (Version 1)
Quarter: 2014Q2

REPORT INFORMATION
  Report Type: Spontaneous
  Country: US (occurrence: US)
  Receive Date: 20140619
  Receipt Date: 20140619
  Transmission Date: 20141212
  Serious: Yes (Other)
  Sender: FDA-Public Use
  Company Number: US-ASTRAZENECA-2014SE41117

PATIENT
  Age: 56 Year
  Sex: Male
  Weight: 80.7 kg

DRUGS (12)
  1. ATENOLOL [Suspect]
     Indication: BLOOD PRESSURE ABNORMAL
     Route: 048
     Dates: start: 1994
  2. BRILINTA [Suspect]
     Indication: MYOCARDIAL INFARCTION
     Route: 048
     Dates: start: 201405
  3. BRILINTA [Suspect]
     Indication: STENT PLACEMENT
     Route: 048
     Dates: start: 201405
  4. MAVIK [Concomitant]
     Indication: BLOOD PRESSURE ABNORMAL
     Route: 048
     Dates: start: 2004
  5. TEMAZEPAM [Concomitant]
     Indication: SLEEP DISORDER
     Route: 048
     Dates: start: 2007
  6. FLEXERIL [Concomitant]
     Indication: MUSCLE RELAXANT THERAPY
     Dosage: GENERIC, 10 MG TWO TIMES A DAY
     Route: 048
     Dates: start: 2007
  7. NORCO [Concomitant]
     Indication: ARTHRALGIA
     Dosage: 10  AND 325 MG TID
     Route: 048
     Dates: start: 201401
  8. NORCO [Concomitant]
     Indication: NECK PAIN
     Dosage: 10  AND 325 MG TID
     Route: 048
     Dates: start: 201401
  9. NORCO [Concomitant]
     Indication: BACK PAIN
     Dosage: 10  AND 325 MG TID
     Route: 048
     Dates: start: 201401
  10. HYDROCODONE [Concomitant]
     Dosage: GENERIC
     Route: 048
     Dates: end: 201401
  11. ASPIRIN [Concomitant]
     Indication: ANTICOAGULANT THERAPY
     Route: 048
     Dates: start: 1991, end: 201405
  12. ASPIRIN [Concomitant]
     Indication: ANTICOAGULANT THERAPY
     Route: 048
     Dates: start: 201405

REACTIONS (4)
  - Myocardial infarction [Unknown]
  - Dyspnoea [Recovering/Resolving]
  - Angina pectoris [Recovered/Resolved]
  - Ear discomfort [Recovered/Resolved]
